FAERS Safety Report 4508426-2 (Version None)
Quarter: 2004Q4

REPORT INFORMATION
  Report Type: 
  Country: None (occurrence: None)
  Receive Date: 20041123
  Receipt Date: 20040205
  Transmission Date: 20050328
  Serious: No
  Sender: FDA-Public Use
  Company Number: US-GLAXOSMITHKLINE-A0497145A

PATIENT
  Sex: Female

DRUGS (1)
  1. WELLBUTRIN SR [Suspect]
     Indication: ILL-DEFINED DISORDER
     Route: 048

REACTIONS (6)
  - ERYTHEMA [None]
  - EYE IRRITATION [None]
  - EYELID OEDEMA [None]
  - HEADACHE [None]
  - HYPERSENSITIVITY [None]
  - RASH MACULAR [None]
